FAERS Safety Report 10050178 (Version 1)
Quarter: 2014Q1

REPORT INFORMATION
  Report Type: Spontaneous
  Country: US (occurrence: None)
  Receive Date: 20140331
  Receipt Date: 20140331
  Transmission Date: 20141002
  Serious: Yes (Other)
  Sender: FDA-Public Use
  Company Number: None

PATIENT
  Age: 36 Year
  Sex: Female
  Weight: 60.78 kg

DRUGS (1)
  1. MONTELUKAST [Suspect]
     Indication: MULTIPLE ALLERGIES
     Dosage: ONE PILL,ONCE DAILY, TAKEN BY MOUTH

REACTIONS (6)
  - Anxiety [None]
  - Panic attack [None]
  - Phobia [None]
  - Emotional disorder [None]
  - Morbid thoughts [None]
  - Product substitution issue [None]
